FAERS Safety Report 13166687 (Version 1)
Quarter: 2017Q1

REPORT INFORMATION
  Report Type: Spontaneous
  Country: None (occurrence: US)
  Receive Date: 20170127
  Receipt Date: 20170127
  Transmission Date: 20170428
  Serious: No
  Sender: FDA-Public Use
  Company Number: None

PATIENT
  Age: 55 Year
  Sex: Female

DRUGS (1)
  1. HUMIRA [Suspect]
     Active Substance: ADALIMUMAB
     Indication: NEURALGIA
     Route: 058
     Dates: start: 20160719

REACTIONS (2)
  - Pruritus [None]
  - Skin ulcer [None]

NARRATIVE: CASE EVENT DATE: 20170125
